FAERS Safety Report 7720941-7 (Version None)
Quarter: 2011Q3

REPORT INFORMATION
  Report Type: 
  Country: None (occurrence: None)
  Receive Date: 20110825
  Receipt Date: 20110811
  Transmission Date: 20111222
  Serious: Yes (Hospitalization)
  Sender: FDA-Public Use
  Company Number: 15773120

PATIENT
  Age: 88 Year
  Sex: Female

DRUGS (4)
  1. APIXABAN [Suspect]
     Indication: EMBOLISM
     Dosage: 10 MILLIGRAM 1 DAY ORAL
     Route: 048
     Dates: start: 20101116, end: 20110503
  2. ENOXAPARIN SODIUM [Suspect]
     Indication: EMBOLISM
     Dosage: 1.6 MILLILITER SC
     Route: 058
     Dates: start: 20101116, end: 20101126
  3. WARFARIN SODIUM [Suspect]
     Indication: EMBOLISM
     Dosage: 4 MILLIGRAM 1 DAY ORAL
     Route: 048
     Dates: start: 20101116, end: 20110503
  4. PLACEBO [Suspect]
     Indication: EMBOLISM
     Dates: start: 20101116

REACTIONS (1)
  - BRONCHITIS [None]
